FAERS Safety Report 8551139-0 (Version None)
Quarter: 2012Q3

REPORT INFORMATION
  Report Type: 
  Country: None (occurrence: None)
  Receive Date: 20120730
  Receipt Date: 20110831
  Transmission Date: 20120928
  Serious: No
  Sender: FDA-Public Use
  Company Number: US-ALLERGAN-1111665US

PATIENT
  Sex: Female

DRUGS (3)
  1. LATISSE [Suspect]
     Indication: GROWTH OF EYELASHES
     Dosage: 1 GTT, PRN
     Route: 061
     Dates: start: 20101101
  2. LATISSE [Suspect]
  3. OTC EYE DROPS (CLEAR EYES OR VISINE) [Concomitant]
     Dosage: UNK
     Route: 047

REACTIONS (2)
  - INAPPROPRIATE SCHEDULE OF DRUG ADMINISTRATION [None]
  - DRUG INEFFECTIVE [None]
